FAERS Safety Report 8336031-9 (Version None)
Quarter: 2012Q2

REPORT INFORMATION
  Report Type: 
  Country: None (occurrence: None)
  Receive Date: 20120501
  Receipt Date: 20120501
  Transmission Date: 20120825
  Serious: Yes (Hospitalization)
  Sender: FDA-Public Use
  Company Number: None

PATIENT
  Age: 30 Year
  Sex: Female
  Weight: 70.9 kg

DRUGS (1)
  1. NAPROXEN [Suspect]
     Indication: PAIN
     Dosage: 250 MG ONCE PO
     Route: 048
     Dates: start: 20120203, end: 20120203

REACTIONS (1)
  - HYPERKALAEMIA [None]
